FAERS Safety Report 10141967 (Version 1)
Quarter: 2014Q2

REPORT INFORMATION
  Report Type: Spontaneous
  Country: FR (occurrence: FR)
  Receive Date: 20140429
  Receipt Date: 20140429
  Transmission Date: 20141212
  Serious: Yes (Death, Life-Threatening, Hospitalization)
  Sender: FDA-Public Use
  Company Number: FR-TEVA-476738ISR

PATIENT
  Age: 69 Year
  Sex: Female

DRUGS (5)
  1. PACLITAXEL TEVA [Suspect]
     Indication: OVARIAN CANCER
     Route: 042
     Dates: start: 20091222, end: 20091222
  2. PACLITAXEL TEVA [Suspect]
     Route: 042
     Dates: start: 201003, end: 201003
  3. CARBOPLATINE ACTAVIS [Suspect]
     Dosage: AUC 4 IN 1 WEEK
     Route: 042
     Dates: start: 20091222, end: 20091222
  4. CARBOPLATINE ACTAVIS [Suspect]
     Dosage: AUC 2 IN 1 WEEK
     Route: 042
     Dates: start: 201003, end: 201003
  5. CORTICOSTEROIDS [Concomitant]
     Indication: PREMEDICATION

REACTIONS (12)
  - Septic shock [Fatal]
  - Neutropenia [Fatal]
  - Pancytopenia [Recovered/Resolved with Sequelae]
  - Shock haemorrhagic [Recovered/Resolved with Sequelae]
  - Dyspnoea [Recovered/Resolved with Sequelae]
  - Pleural effusion [Recovered/Resolved with Sequelae]
  - Haematemesis [Recovered/Resolved with Sequelae]
  - Oesophagitis [Recovered/Resolved with Sequelae]
  - Diarrhoea [Unknown]
  - Vomiting [Unknown]
  - Pyrexia [Unknown]
  - General physical health deterioration [Unknown]
